FAERS Safety Report 4318546-3 (Version None)
Quarter: 2004Q1

REPORT INFORMATION
  Report Type: 
  Country: None (occurrence: None)
  Receive Date: 20040315
  Receipt Date: 20040304
  Transmission Date: 20041129
  Serious: Yes (Death, Other)
  Sender: FDA-Public Use
  Company Number: 2004202471AU

PATIENT

DRUGS (1)
  1. CELEBREX [Suspect]

REACTIONS (1)
  - GASTROINTESTINAL HAEMORRHAGE [None]
